FAERS Safety Report 12420729 (Version 1)
Quarter: 2016Q2

REPORT INFORMATION
  Report Type: Report from Study
  Country: US (occurrence: US)
  Receive Date: 20160531
  Receipt Date: 20160531
  Transmission Date: 20160815
  Serious: Yes (Other)
  Sender: FDA-Public Use
  Company Number: US-EISAI MEDICAL RESEARCH-EC-2016-015954

PATIENT
  Sex: Male
  Weight: 88 kg

DRUGS (15)
  1. OXYCONTIN [Concomitant]
     Active Substance: OXYCODONE HYDROCHLORIDE
  2. ONDANSETRON [Concomitant]
     Active Substance: ONDANSETRON
  3. AMLODIPINE BESYLATE. [Concomitant]
     Active Substance: AMLODIPINE BESYLATE
  4. LENVIMA [Suspect]
     Active Substance: LENVATINIB
     Indication: THYROID CANCER
     Route: 048
  5. XARELTO [Concomitant]
     Active Substance: RIVAROXABAN
  6. FLUCONAZOLE. [Concomitant]
     Active Substance: FLUCONAZOLE
  7. LORAZEPAM. [Concomitant]
     Active Substance: LORAZEPAM
  8. LEVETIRACETAM. [Concomitant]
     Active Substance: LEVETIRACETAM
  9. DOXYCYCLINE. [Concomitant]
     Active Substance: DOXYCYCLINE
  10. PRILOSEC [Concomitant]
     Active Substance: OMEPRAZOLE MAGNESIUM
  11. SYNTHROID [Concomitant]
     Active Substance: LEVOTHYROXINE SODIUM
  12. FUROSEMIDE. [Concomitant]
     Active Substance: FUROSEMIDE
  13. CARAFATE [Concomitant]
     Active Substance: SUCRALFATE
  14. DEXAMETHASONE. [Concomitant]
     Active Substance: DEXAMETHASONE
  15. AMOXICILLIN-CLAVULANATE [Concomitant]
     Active Substance: AMOXICILLIN\CLAVULANIC ACID

REACTIONS (2)
  - Cerebrovascular accident [Unknown]
  - Blood pressure systolic increased [Unknown]

NARRATIVE: CASE EVENT DATE: 2016
